FAERS Safety Report 11718205 (Version 3)
Quarter: 2015Q4

REPORT INFORMATION
  Report Type: Spontaneous
  Country: JP (occurrence: JP)
  Receive Date: 20151110
  Receipt Date: 20151208
  Transmission Date: 20160304
  Serious: Yes (Death, Hospitalization)
  Sender: FDA-Public Use
  Company Number: JP-ELI_LILLY_AND_COMPANY-JP201511002332

PATIENT
  Age: 62 Year
  Sex: Male

DRUGS (8)
  1. CYRAMZA [Suspect]
     Active Substance: RAMUCIRUMAB
     Indication: MALIGNANT ASCITES
  2. FERRUM                             /00023505/ [Concomitant]
     Indication: IRON DEFICIENCY ANAEMIA
     Dosage: 100 MG, UNK
     Route: 048
     Dates: start: 20150427
  3. ROPION [Concomitant]
     Active Substance: FLURBIPROFEN AXETIL
     Dosage: UNK
  4. PACLITAXEL. [Concomitant]
     Active Substance: PACLITAXEL
     Indication: MALIGNANT ASCITES
  5. CYRAMZA [Suspect]
     Active Substance: RAMUCIRUMAB
     Indication: GASTRIC CANCER
     Dosage: 8 MG/KG, DAY1 AND DAY15 OF 28-DAY CYCLE
     Route: 042
     Dates: start: 20150701, end: 20150911
  6. SCOPOLAMINE BUTYLBROMIDE [Concomitant]
     Active Substance: SCOPOLAMINE
     Indication: ABDOMINAL PAIN
     Dosage: 30 MG, UNK
     Route: 048
     Dates: start: 20150511
  7. PACLITAXEL. [Concomitant]
     Active Substance: PACLITAXEL
     Indication: GASTRIC CANCER
     Dosage: 80 MG/M2, DAY1 DAY8 AND DAY15 OF 28-DAY CYCLE
     Route: 042
     Dates: start: 20150701, end: 20150911
  8. OXINORM                            /00045603/ [Concomitant]
     Active Substance: OXYCODONE HYDROCHLORIDE
     Indication: ABDOMINAL PAIN
     Dosage: 2.5 MG, UNK
     Route: 048
     Dates: start: 20150629

REACTIONS (3)
  - Malignant neoplasm progression [Fatal]
  - Disseminated intravascular coagulation [Fatal]
  - Hypoaesthesia [Unknown]

NARRATIVE: CASE EVENT DATE: 20150701
